FAERS Safety Report 7624891-6 (Version None)
Quarter: 2011Q3

REPORT INFORMATION
  Report Type: 
  Country: None (occurrence: None)
  Receive Date: 20110720
  Receipt Date: 20110719
  Transmission Date: 20111222
  Serious: Yes (Life-Threatening, Hospitalization)
  Sender: FDA-Public Use
  Company Number: CA-MERCK-1107USA02387

PATIENT
  Age: 20 Year
  Sex: Female

DRUGS (3)
  1. JANUVIA [Suspect]
     Route: 048
  2. ETHINYL ESTRADIOL AND NORGESTIMATE [Concomitant]
     Route: 065
  3. METFORMIN [Concomitant]
     Route: 065

REACTIONS (2)
  - DIABETIC KETOACIDOSIS [None]
  - PANCREATITIS ACUTE [None]
